FAERS Safety Report 6148396-7 (Version None)
Quarter: 2009Q2

REPORT INFORMATION
  Report Type: 
  Country: None (occurrence: None)
  Receive Date: 20090408
  Receipt Date: 20090324
  Transmission Date: 20091009
  Serious: Yes (Hospitalization)
  Sender: FDA-Public Use
  Company Number: FR-GENENTECH-280437

PATIENT
  Sex: Male

DRUGS (12)
  1. MABTHERA [Suspect]
     Indication: DRUG USE FOR UNKNOWN INDICATION
     Dosage: UNK
     Route: 042
  2. MABTHERA [Suspect]
     Dosage: 375 MG/M2, QD
     Route: 042
     Dates: start: 20080421, end: 20080421
  3. DEXRAZOXANE [Suspect]
     Indication: DRUG USE FOR UNKNOWN INDICATION
     Dosage: UNK
  4. DEXRAZOXANE [Suspect]
     Dosage: 824 MG/M2, QD
     Route: 042
     Dates: start: 20080422, end: 20080422
  5. DOXORUBICIN HCL [Suspect]
     Indication: DRUG USE FOR UNKNOWN INDICATION
     Dosage: UNK
  6. DOXORUBICIN HCL [Suspect]
     Dosage: 43.96 MG/M2, QD
     Route: 042
     Dates: start: 20080422, end: 20080422
  7. CYCLOPHOSPHAMIDE [Suspect]
     Indication: DRUG USE FOR UNKNOWN INDICATION
     Dosage: UNK
  8. CYCLOPHOSPHAMIDE [Suspect]
     Dosage: 659.94 MG/M2, QD
     Route: 042
     Dates: start: 20080422, end: 20080422
  9. VINCRISTINE [Suspect]
     Indication: DRUG USE FOR UNKNOWN INDICATION
     Dosage: UNK
  10. VINCRISTINE [Suspect]
     Dosage: 1.12 MG/M2, QD
     Route: 042
     Dates: start: 20080422, end: 20080422
  11. PREDNISOLONE [Concomitant]
     Indication: DRUG USE FOR UNKNOWN INDICATION
  12. METHYLPREDNISOLONE 4MG TAB [Concomitant]
     Indication: DRUG USE FOR UNKNOWN INDICATION

REACTIONS (1)
  - GUILLAIN-BARRE SYNDROME [None]
